FAERS Safety Report 8478766-3 (Version None)
Quarter: 2012Q2

REPORT INFORMATION
  Report Type: 
  Country: None (occurrence: None)
  Receive Date: 20120629
  Receipt Date: 20120619
  Transmission Date: 20120825
  Serious: Yes (Hospitalization)
  Sender: FDA-Public Use
  Company Number: US-BAYER-2012-051166

PATIENT
  Age: 77 Year
  Sex: Male
  Weight: 100.25 kg

DRUGS (18)
  1. XARELTO [Interacting]
     Indication: CEREBROVASCULAR ACCIDENT PROPHYLAXIS
     Dosage: 20 MG, QD
     Route: 048
     Dates: start: 20120101, end: 20120404
  2. ALBUTEROL [Concomitant]
     Route: 055
  3. DIOVAN [Concomitant]
     Route: 048
  4. VITAMIN D [Concomitant]
     Route: 048
  5. ASPIRIN [Suspect]
  6. NIASPAN [Concomitant]
     Route: 048
  7. XARELTO [Interacting]
     Indication: ATRIAL FIBRILLATION
  8. METAMUCIL-2 [Concomitant]
     Route: 048
  9. LIPITOR [Concomitant]
     Route: 048
  10. EPLERENONE [Concomitant]
     Route: 048
     Dates: start: 20111208
  11. ALPRAZOLAM [Concomitant]
     Route: 048
  12. CALCITE D [Concomitant]
     Route: 048
  13. DRONEDARONE HCL [Concomitant]
     Dosage: 400 MG, UNK
  14. FLUTICASONE PROPIONATE/SALMETEROL [Concomitant]
     Route: 055
  15. AVODART [Concomitant]
     Route: 048
  16. CARVEDILOL [Concomitant]
     Route: 048
  17. OMEPRAZOLE [Concomitant]
     Route: 048
  18. GLUCOSAMINE [Concomitant]
     Route: 048

REACTIONS (4)
  - GINGIVAL BLEEDING [None]
  - DRUG PRESCRIBING ERROR [None]
  - HAEMATURIA [None]
  - HAEMOPTYSIS [None]
